FAERS Safety Report 6801030-2 (Version None)
Quarter: 2010Q2

REPORT INFORMATION
  Report Type: 
  Country: None (occurrence: None)
  Receive Date: 20100624
  Receipt Date: 20100611
  Transmission Date: 20101027
  Serious: Yes (Hospitalization, Other)
  Sender: FDA-Public Use
  Company Number: 2010-1516

PATIENT
  Age: 72 Year
  Sex: Male

DRUGS (7)
  1. APO-GO AMPOULES (APO-GO)(APOMORPHINE HYDROCHLORIDE) (APOMORPHINE HYDRO [Suspect]
     Indication: RESTLESS LEGS SYNDROME
     Dosage: , SUBCUTANEOUS
     Route: 058
     Dates: start: 20090224, end: 20100311
  2. APO-GO AMPOULES (APO-GO)(APOMORPHINE HYDROCHLORIDE) (APOMORPHINE HYDRO [Suspect]
     Indication: RESTLESS LEGS SYNDROME
     Dosage: , SUBCUTANEOUS
     Route: 058
     Dates: start: 20100313, end: 20100405
  3. METFORMIN HCL [Concomitant]
  4. GLICAZIDE (GLICLAZIDE) [Concomitant]
  5. SIMVASTATIN [Concomitant]
  6. METRONIDAZOLE [Concomitant]
  7. ANTIBIOTICS (ANTIBIOTICS) [Concomitant]

REACTIONS (5)
  - FATIGUE [None]
  - HEPATITIS C [None]
  - INFUSION SITE NECROSIS [None]
  - LOSS OF CONSCIOUSNESS [None]
  - MALAISE [None]
